FAERS Safety Report 6555499-1 (Version None)
Quarter: 2010Q1

REPORT INFORMATION
  Report Type: 
  Country: None (occurrence: None)
  Receive Date: 20100128
  Receipt Date: 20100115
  Transmission Date: 20100710
  Serious: Yes (Hospitalization)
  Sender: FDA-Public Use
  Company Number: GB-ROCHE-646798

PATIENT
  Age: 14 Year

DRUGS (6)
  1. TAMIFLU [Suspect]
     Dosage: MEDICATION FROM: HOSPITAL PHARMACY
     Route: 065
     Dates: start: 20090723, end: 20090725
  2. FLOXACILLIN SODIUM [Concomitant]
  3. CEFTAZIDIME PENTAHYDRATE [Concomitant]
  4. GENTAMICIN SULFATE [Concomitant]
  5. LAMOTRIGINE [Concomitant]
  6. BACLOFEN [Concomitant]

REACTIONS (1)
  - ACUTE HEPATIC FAILURE [None]
